FAERS Safety Report 12260690 (Version 2)
Quarter: 2016Q2

REPORT INFORMATION
  Report Type: Spontaneous
  Country: US (occurrence: US)
  Receive Date: 20160412
  Receipt Date: 20160510
  Transmission Date: 20160815
  Serious: Yes (Hospitalization)
  Sender: FDA-Public Use
  Company Number: US-SMITH AND NEPHEW, INC-2016SMT00300

PATIENT
  Age: 87 Year
  Sex: Female
  Weight: 49.43 kg

DRUGS (16)
  1. REGRANEX [Suspect]
     Active Substance: BECAPLERMIN
     Indication: WOUND
     Dosage: UNK UNK, EVERY 48 HOURS
     Route: 061
     Dates: start: 201603, end: 20160320
  2. SPIRONOLACTONE. [Concomitant]
     Active Substance: SPIRONOLACTONE
     Dosage: 25 MG, 1X/DAY
  3. ACIDOPHILUS [Concomitant]
     Active Substance: LACTOBACILLUS ACIDOPHILUS
     Dosage: UNK, 1X/DAY
  4. MAGNESIUM [Concomitant]
     Active Substance: MAGNESIUM
     Dosage: 400 MG, 2X/DAY
  5. LOSARTAN. [Concomitant]
     Active Substance: LOSARTAN
     Dosage: 25 MG, 1X/DAY
  6. LEVOTHYROXINE. [Concomitant]
     Active Substance: LEVOTHYROXINE
     Dosage: 75 ?G, 1X/DAY
  7. GABAPENTIN. [Concomitant]
     Active Substance: GABAPENTIN
     Dosage: 300 MG, 1X/DAY
     Route: 048
  8. ZANTAC [Concomitant]
     Active Substance: RANITIDINE HYDROCHLORIDE
     Dosage: 300 MG, 1X/DAY
  9. PLAVIX [Concomitant]
     Active Substance: CLOPIDOGREL BISULFATE
     Dosage: 75 MG, 1X/DAY
  10. PREDNISONE. [Concomitant]
     Active Substance: PREDNISONE
     Dosage: 3 MG, 1X/DAY
  11. ASPIRIN. [Concomitant]
     Active Substance: ASPIRIN
     Dosage: 81 MG, 1X/DAY
  12. LASIX [Concomitant]
     Active Substance: FUROSEMIDE
     Dosage: 40 MG, 1X/DAY
  13. METOPROLOL. [Concomitant]
     Active Substance: METOPROLOL
     Dosage: 25 MG, 1X/DAY
  14. KLOR-CON [Concomitant]
     Active Substance: POTASSIUM CHLORIDE
     Dosage: 20 MG, 1X/DAY
  15. TRAMADOL. [Concomitant]
     Active Substance: TRAMADOL
     Dosage: 50 MG, AS NEEDED
  16. METFORMIN [Concomitant]
     Active Substance: METFORMIN HYDROCHLORIDE
     Dosage: 500 MG, 1X/DAY

REACTIONS (4)
  - Wound complication [Recovered/Resolved with Sequelae]
  - Application site necrosis [Recovered/Resolved with Sequelae]
  - Inappropriate schedule of drug administration [Recovered/Resolved]
  - Toe amputation [Recovered/Resolved with Sequelae]

NARRATIVE: CASE EVENT DATE: 201603
